FAERS Safety Report 5907367-3 (Version None)
Quarter: 2008Q4

REPORT INFORMATION
  Report Type: 
  Country: None (occurrence: None)
  Receive Date: 20081003
  Receipt Date: 20080922
  Transmission Date: 20090506
  Serious: Yes (Hospitalization)
  Sender: FDA-Public Use
  Company Number: FR-ELI_LILLY_AND_COMPANY-FR200808002755

PATIENT
  Age: 83 Year
  Sex: Female

DRUGS (13)
  1. FORTEO [Suspect]
     Indication: OSTEOPOROSIS
     Dosage: 20 UG, DAILY (1/D)
     Route: 058
     Dates: start: 20070424
  2. LEDERFOLIN [Concomitant]
     Dosage: UNK, UNKNOWN
     Route: 065
  3. OROCAL D(3) [Concomitant]
     Dosage: UNK, UNKNOWN
     Route: 065
  4. DIFFU K [Concomitant]
     Dosage: UNK, UNKNOWN
     Route: 065
  5. ZALDIAR [Concomitant]
     Dosage: UNK, UNKNOWN
     Route: 065
  6. OMEPRAZOLE [Concomitant]
     Dosage: 10 MG, DAILY (1/D)
     Route: 065
  7. HYDROCORTISONE [Concomitant]
     Indication: POLYARTHRITIS
     Dosage: 30 MG, DAILY (1/D)
     Route: 065
  8. METOPROLOL TARTRATE [Concomitant]
     Dosage: UNK, UNKNOWN
     Route: 065
  9. SERECOR [Concomitant]
     Dosage: UNK, UNKNOWN
     Route: 065
  10. KARDEGIC [Concomitant]
     Dosage: 75 MG, DAILY (1/D)
     Route: 065
  11. LEVOTHYROX [Concomitant]
     Dosage: 25 MG, DAILY (1/D)
     Route: 065
  12. TRANXENE [Concomitant]
     Dosage: UNK, UNKNOWN
     Route: 065
  13. NASALIDE [Concomitant]
     Dosage: UNK, UNKNOWN
     Route: 065

REACTIONS (3)
  - FALL [None]
  - UPPER LIMB FRACTURE [None]
  - WRIST FRACTURE [None]
